FAERS Safety Report 12897667 (Version 1)
Quarter: 2016Q4

REPORT INFORMATION
  Report Type: Report from Study
  Country: US (occurrence: US)
  Receive Date: 20161031
  Receipt Date: 20161031
  Transmission Date: 20170207
  Serious: Yes (Hospitalization, Other)
  Sender: FDA-Public Use
  Company Number: US-ASTELLAS-2015US039642

PATIENT
  Age: 70 Year
  Sex: Female

DRUGS (15)
  1. ERLOTINIB [Suspect]
     Active Substance: ERLOTINIB
     Indication: NON-SMALL CELL LUNG CANCER
     Route: 048
     Dates: start: 20150927, end: 20160128
  2. DOXYCYCLINE. [Suspect]
     Active Substance: DOXYCYCLINE
     Route: 048
  3. TURMERIC                           /01079601/ [Concomitant]
     Active Substance: TURMERIC
     Indication: PRODUCT USED FOR UNKNOWN INDICATION
     Dosage: 1 G, UNK
     Route: 065
  4. DOXYCYCLINE. [Suspect]
     Active Substance: DOXYCYCLINE
     Indication: RASH
     Route: 048
     Dates: start: 201509
  5. DOXYCYCLINE. [Suspect]
     Active Substance: DOXYCYCLINE
     Route: 048
  6. ERLOTINIB [Suspect]
     Active Substance: ERLOTINIB
     Indication: LUNG NEOPLASM MALIGNANT
     Route: 048
     Dates: start: 20160129
  7. DOXYCYCLINE. [Suspect]
     Active Substance: DOXYCYCLINE
     Route: 048
  8. VITAMIN C [Concomitant]
     Active Substance: ASCORBIC ACID
     Indication: PRODUCT USED FOR UNKNOWN INDICATION
     Dosage: UNK UNK, UNKNOWN FREQ.
     Route: 065
  9. LATANOPROST. [Concomitant]
     Active Substance: LATANOPROST
     Indication: GLAUCOMA
     Route: 047
     Dates: start: 201504
  10. ASPIRIN. [Concomitant]
     Active Substance: ASPIRIN
     Indication: ENDARTERECTOMY
     Route: 048
     Dates: start: 201503
  11. ASPIRIN. [Concomitant]
     Active Substance: ASPIRIN
     Indication: THROMBOSIS
  12. METFORMIN [Concomitant]
     Active Substance: METFORMIN HYDROCHLORIDE
     Indication: PRODUCT USED FOR UNKNOWN INDICATION
     Dosage: 500, TWICE DAILY
     Route: 065
  13. ERLOTINIB [Suspect]
     Active Substance: ERLOTINIB
     Dosage: 150 MG, ONCE DAILY, TOOK FOR 3 WEEKS THEN WENT BACK TO 100 MG
     Route: 048
     Dates: start: 20151026
  14. DOXYCYCLINE. [Suspect]
     Active Substance: DOXYCYCLINE
     Route: 048
  15. METFORMIN [Concomitant]
     Active Substance: METFORMIN HYDROCHLORIDE
     Dosage: 100 MG, ONCE DAILY
     Route: 065

REACTIONS (13)
  - Pulmonary mass [Unknown]
  - Alopecia [Unknown]
  - Rash [Recovered/Resolved]
  - Drug ineffective [Unknown]
  - Heart rate increased [Unknown]
  - Palpitations [Unknown]
  - Body temperature increased [Unknown]
  - Photosensitivity reaction [Not Recovered/Not Resolved]
  - Skin exfoliation [Not Recovered/Not Resolved]
  - Nausea [Recovering/Resolving]
  - Rash erythematous [Recovering/Resolving]
  - Dyspnoea [Not Recovered/Not Resolved]
  - Pruritus [Unknown]

NARRATIVE: CASE EVENT DATE: 201509
